FAERS Safety Report 19523725 (Version 1)
Quarter: 2021Q3

REPORT INFORMATION
  Report Type: Spontaneous
  Country: CN (occurrence: CN)
  Receive Date: 20210712
  Receipt Date: 20210712
  Transmission Date: 20211014
  Serious: Yes (Other)
  Sender: FDA-Public Use
  Company Number: NVSC2021CN151711

PATIENT
  Age: 80 Year
  Sex: Female

DRUGS (2)
  1. ENTRESTO [Suspect]
     Active Substance: SACUBITRIL\VALSARTAN
     Indication: CARDIAC FAILURE
  2. ENTRESTO [Suspect]
     Active Substance: SACUBITRIL\VALSARTAN
     Indication: ESSENTIAL HYPERTENSION
     Dosage: 25 MG, BID
     Route: 048

REACTIONS (6)
  - Cardiac dysfunction [Unknown]
  - Wrong technique in product usage process [Unknown]
  - Brain natriuretic peptide increased [Unknown]
  - Hypotension [Unknown]
  - Incorrect dose administered [Unknown]
  - Underdose [Unknown]
